FAERS Safety Report 6936379-6 (Version None)
Quarter: 2010Q3

REPORT INFORMATION
  Report Type: 
  Country: None (occurrence: None)
  Receive Date: 20100823
  Receipt Date: 20100813
  Transmission Date: 20110219
  Serious: Yes (Other)
  Sender: FDA-Public Use
  Company Number: GXKR2010FR09091

PATIENT
  Age: 12 Year
  Sex: Female
  Weight: 31 kg

DRUGS (3)
  1. PREDNISONE (NGX) [Suspect]
     Indication: IMMUNOSUPPRESSION
     Dosage: 0.9 MG/KG/DAY,  ( 25MG QD)
     Route: 065
  2. TACROLIMUS [Concomitant]
     Indication: IMMUNOSUPPRESSION
     Dosage: 4 MG, BID
  3. MYCOPHENOLATE MOFETIL [Concomitant]
     Indication: IMMUNOSUPPRESSION
     Dosage: 1 G, BID

REACTIONS (4)
  - DYSURIA [None]
  - EPIDURAL LIPOMATOSIS [None]
  - MUSCULAR WEAKNESS [None]
  - PARAESTHESIA [None]
